FAERS Safety Report 16405884 (Version 1)
Quarter: 2019Q2

REPORT INFORMATION
  Report Type: Spontaneous
  Country: GB (occurrence: GB)
  Receive Date: 20190607
  Receipt Date: 20190607
  Transmission Date: 20190711
  Serious: Yes (Hospitalization)
  Sender: FDA-Public Use
  Company Number: GB-MYLANLABS-2019M1053007

PATIENT
  Sex: Female

DRUGS (3)
  1. LAMOTRIGINE. [Concomitant]
     Active Substance: LAMOTRIGINE
  2. TRAMADOL. [Suspect]
     Active Substance: TRAMADOL
     Indication: ANALGESIC THERAPY
     Dosage: 400 MILLIGRAM, QD
     Route: 048
     Dates: start: 2018, end: 201811
  3. SODIUM VALPROATE [Concomitant]
     Active Substance: VALPROATE SODIUM

REACTIONS (1)
  - Epilepsy [Recovered/Resolved]
